FAERS Safety Report 14157676 (Version 4)
Quarter: 2018Q1

REPORT INFORMATION
  Report Type: Spontaneous
  Country: NL (occurrence: NL)
  Receive Date: 20171103
  Receipt Date: 20180207
  Transmission Date: 20180508
  Serious: Yes (Life-Threatening, Other)
  Sender: FDA-Public Use
  Company Number: NL-TEVA-821822ROM

PATIENT
  Age: 64 Year
  Sex: Female
  Weight: 75 kg

DRUGS (6)
  1. CARBAMAZEPINE TABLET MGA 200MG [Concomitant]
     Active Substance: CARBAMAZEPINE
     Dosage: 1200 MILLIGRAM DAILY;
     Route: 048
     Dates: start: 201708
  2. CARBAMAZEPINE TABLET MGA 200MG [Concomitant]
     Active Substance: CARBAMAZEPINE
     Dosage: 300 MILLIGRAM DAILY;
  3. FOSINOPRIL TABLET 20MG [Suspect]
     Active Substance: FOSINOPRIL
     Dosage: 10 MILLIGRAM DAILY; 1 TABLET IN THE EVENING
     Route: 048
     Dates: start: 20171002
  4. FOSINOPRIL TABLET 20MG [Suspect]
     Active Substance: FOSINOPRIL
     Dosage: 1 TABLET IN THE EVENING
     Route: 065
     Dates: start: 20171002
  5. FOSINOPRIL TABLET 20MG [Suspect]
     Active Substance: FOSINOPRIL
     Dosage: AFTER WEEKS 10 MGR. PER DAY IN THE EVENING
     Route: 065
     Dates: start: 20170920, end: 20171002
  6. GREPID 75 MGR [Concomitant]
     Dosage: 75 MILLIGRAM DAILY;
     Dates: start: 20171003, end: 20171030

REACTIONS (5)
  - Cognitive disorder [Not Recovered/Not Resolved]
  - Paraesthesia [Not Recovered/Not Resolved]
  - Hypertensive crisis [Recovered/Resolved with Sequelae]
  - Lacunar infarction [Recovered/Resolved with Sequelae]
  - Hypotension [Recovered/Resolved with Sequelae]

NARRATIVE: CASE EVENT DATE: 20171003
